FAERS Safety Report 16798436 (Version 1)
Quarter: 2019Q3

REPORT INFORMATION
  Report Type: Spontaneous
  Country: US (occurrence: US)
  Receive Date: 20190722
  Receipt Date: 20190722
  Transmission Date: 20191005
  Serious: No
  Sender: FDA-Public Use
  Company Number: None

PATIENT
  Age: 64 Year
  Sex: Male
  Weight: 147 kg

DRUGS (1)
  1. PAZOPANIB 200MG-600MG (DOSES USED) [Suspect]
     Active Substance: PAZOPANIB
     Indication: RENAL CELL CARCINOMA
     Dosage: 200-600MG DAILY PO
     Route: 048
     Dates: start: 20190101, end: 20190409

REACTIONS (2)
  - Osteonecrosis [None]
  - Wheelchair user [None]

NARRATIVE: CASE EVENT DATE: 20190402
